FAERS Safety Report 8339678-9 (Version None)
Quarter: 2012Q2

REPORT INFORMATION
  Report Type: 
  Country: None (occurrence: None)
  Receive Date: 20120507
  Receipt Date: 20120504
  Transmission Date: 20120825
  Serious: Yes (Death, Other)
  Sender: FDA-Public Use
  Company Number: PHHY2012NL022722

PATIENT
  Sex: Male

DRUGS (2)
  1. ZOMETA [Suspect]
     Indication: PROSTATE CANCER METASTATIC
     Dosage: 4 MG /100ML ONCE IN 56 DAYS
     Route: 042
     Dates: start: 20111128
  2. ZOMETA [Suspect]
     Dosage: 4 MG /100ML ONCE IN 56 DAYS
     Route: 042
     Dates: start: 20120124

REACTIONS (4)
  - NEOPLASM PROGRESSION [None]
  - CEREBRAL INFARCTION [None]
  - MALAISE [None]
  - NEOPLASM MALIGNANT [None]
